FAERS Safety Report 14311888 (Version 4)
Quarter: 2018Q1

REPORT INFORMATION
  Report Type: Report from Study
  Country: None (occurrence: DE)
  Receive Date: 20171221
  Receipt Date: 20180205
  Transmission Date: 20180509
  Serious: Yes (Hospitalization)
  Sender: FDA-Public Use
  Company Number: DE-ABBVIE-17K-062-2195086-00

PATIENT
  Age: 61 Year
  Sex: Male

DRUGS (3)
  1. DUODOPA [Suspect]
     Active Substance: CARBIDOPA\LEVODOPA
     Indication: PARKINSON^S DISEASE
     Dosage: NOT YET ASCERTAINED, PATIENT WAS CURRENTLY IN THE PRIMARY DUODOPA ADJUSTMENT PHASE
     Route: 050
     Dates: start: 20171212, end: 20171213
  2. DUODOPA [Suspect]
     Active Substance: CARBIDOPA\LEVODOPA
     Dosage: THE CONTINUOUS RATE OF THE PUMP WAS REDUCED. SPECIFIC VALUES NOT YET ASCERTAINED
     Route: 050
     Dates: start: 20171213, end: 201712
  3. DUODOPA [Suspect]
     Active Substance: CARBIDOPA\LEVODOPA
     Dosage: MD: 3.5 ML; CRD: 3.1 ML/H; CRN: 3.1 ML/H, ED 1.5 ML
     Route: 050
     Dates: start: 201712

REACTIONS (7)
  - Hallucination [Recovering/Resolving]
  - On and off phenomenon [Not Recovered/Not Resolved]
  - Device dislocation [Not Recovered/Not Resolved]
  - Stoma site inflammation [Recovered/Resolved]
  - Cognitive disorder [Not Recovered/Not Resolved]
  - On and off phenomenon [Recovered/Resolved]
  - Fall [Recovered/Resolved]

NARRATIVE: CASE EVENT DATE: 20171213
